FAERS Safety Report 8180059-9 (Version None)
Quarter: 2012Q1

REPORT INFORMATION
  Report Type: 
  Country: None (occurrence: None)
  Receive Date: 20120302
  Receipt Date: 20120302
  Transmission Date: 20120608
  Serious: Yes (Other)
  Sender: FDA-Public Use
  Company Number: None

PATIENT
  Sex: Female
  Weight: 103.1 kg

DRUGS (2)
  1. DEFINITY [Suspect]
     Indication: LABORATORY TEST INTERFERENCE
     Dosage: 3ML -1.5ML VIAL IN 8.5ML NS-
     Route: 042
  2. DEFINITY [Suspect]
     Indication: ECHOCARDIOGRAM
     Dosage: 3ML -1.5ML VIAL IN 8.5ML NS-
     Route: 042

REACTIONS (8)
  - BACK PAIN [None]
  - TREMOR [None]
  - ANXIETY [None]
  - PAIN [None]
  - DYSPNOEA [None]
  - FATIGUE [None]
  - CHEST PAIN [None]
  - SCREAMING [None]
